FAERS Safety Report 10067314 (Version 6)
Quarter: 2015Q4

REPORT INFORMATION
  Report Type: Spontaneous
  Country: US (occurrence: US)
  Receive Date: 20140409
  Receipt Date: 20151008
  Transmission Date: 20160304
  Serious: Yes (Life-Threatening, Hospitalization, Other)
  Sender: FDA-Public Use
  Company Number: US-MERCK-1404USA004113

PATIENT
  Sex: Male
  Weight: 120.4 kg

DRUGS (4)
  1. JANUVIA [Suspect]
     Active Substance: SITAGLIPTIN PHOSPHATE
     Indication: TYPE 2 DIABETES MELLITUS
     Dosage: 50 MG, QD
     Route: 048
     Dates: start: 20070824, end: 20090603
  2. PROGRAF [Concomitant]
     Active Substance: TACROLIMUS\TACROLIMUS ANHYDROUS
     Dosage: UNK
     Dates: start: 20051212
  3. JANUVIA [Suspect]
     Active Substance: SITAGLIPTIN PHOSPHATE
     Dosage: 100 MG, QD
     Route: 048
     Dates: start: 20090603, end: 20120503
  4. ASPIRIN. [Concomitant]
     Active Substance: ASPIRIN
     Dosage: 81 MG, UNK
     Dates: start: 20090603

REACTIONS (35)
  - Pulmonary mass [Unknown]
  - Facet joint syndrome [Unknown]
  - Decreased appetite [Unknown]
  - Duodenal polyp [Unknown]
  - Pancreatic carcinoma metastatic [Unknown]
  - Metastases to adrenals [Unknown]
  - Cardiomegaly [Unknown]
  - Splenectomy [Unknown]
  - Adrenal mass [Unknown]
  - Inguinal hernia [Unknown]
  - Escherichia bacteraemia [Unknown]
  - Urosepsis [Unknown]
  - Aortic valve incompetence [Unknown]
  - Diabetes mellitus inadequate control [Unknown]
  - Pancreatectomy [Unknown]
  - Lymphadenectomy [Unknown]
  - Diverticulum intestinal [Unknown]
  - Atelectasis [Unknown]
  - Hypertension [Unknown]
  - Dehydration [Unknown]
  - Osteoarthritis [Unknown]
  - Aortic valve incompetence [Unknown]
  - Diverticulum [Unknown]
  - Spinal osteoarthritis [Unknown]
  - Diverticulum intestinal [Unknown]
  - Neuropathy peripheral [Unknown]
  - Gastric polyps [Unknown]
  - Laparoscopy [Unknown]
  - Unevaluable event [Unknown]
  - Thrombosis [Unknown]
  - Abdominal pain [Unknown]
  - Gastric cancer [Unknown]
  - Skin cancer [Unknown]
  - Pulmonary embolism [Unknown]
  - Abdominal pain [Unknown]

NARRATIVE: CASE EVENT DATE: 20090603
